FAERS Safety Report 17076230 (Version 1)
Quarter: 2019Q4

REPORT INFORMATION
  Report Type: Spontaneous
  Country: KR (occurrence: KR)
  Receive Date: 20191126
  Receipt Date: 20191126
  Transmission Date: 20200122
  Serious: Yes (Hospitalization, Other)
  Sender: FDA-Public Use
  Company Number: KR-ASTRAZENECA-2019SF65132

PATIENT
  Sex: Female

DRUGS (14)
  1. LANSTON [Concomitant]
     Active Substance: LANSOPRAZOLE
  2. VENTOLIN [Concomitant]
     Active Substance: ALBUTEROL SULFATE
  3. SOLONDO [Concomitant]
     Active Substance: PREDNISOLONE
  4. HERBEN [Concomitant]
     Active Substance: DILTIAZEM HYDROCHLORIDE
  5. DILATREND [Concomitant]
     Active Substance: CARVEDILOL
  6. CRIZOTINIB [Suspect]
     Active Substance: CRIZOTINIB
     Indication: NON-SMALL CELL LUNG CANCER
     Route: 048
     Dates: start: 201801, end: 201906
  7. MYCAMINE [Concomitant]
     Active Substance: MICAFUNGIN SODIUM
  8. MOKTIN [Concomitant]
  9. SYNATURA [Concomitant]
  10. CRIZOTINIB [Suspect]
     Active Substance: CRIZOTINIB
     Indication: ROS1 GENE REARRANGEMENT
     Route: 048
     Dates: start: 201801, end: 201906
  11. MUCOSTEN [Concomitant]
  12. TAZOPERAN (PIPERACILLIN\TAZOBACTAM) [Concomitant]
     Active Substance: PIPERACILLIN SODIUM\TAZOBACTAM SODIUM
  13. SMECTA [Concomitant]
     Active Substance: MONTMORILLONITE
  14. GEFITINIB. [Suspect]
     Active Substance: GEFITINIB
     Route: 048
     Dates: start: 20161114, end: 201701

REACTIONS (4)
  - Malignant neoplasm progression [Unknown]
  - Osteomyelitis [Unknown]
  - Metastases to central nervous system [Unknown]
  - Mass [Unknown]

NARRATIVE: CASE EVENT DATE: 201910
